FAERS Safety Report 6443572-8 (Version None)
Quarter: 2009Q4

REPORT INFORMATION
  Report Type: 
  Country: None (occurrence: None)
  Receive Date: 20091117
  Receipt Date: 20090731
  Transmission Date: 20100525
  Serious: Yes (Other)
  Sender: FDA-Public Use
  Company Number: US-PFIZER INC-2009249541

PATIENT
  Sex: Female
  Weight: 73 kg

DRUGS (6)
  1. PREMARIN [Suspect]
     Indication: HORMONE REPLACEMENT THERAPY
     Dosage: UNK
     Dates: start: 19860101, end: 19970101
  2. PREMPHASE 14/14 [Suspect]
     Indication: HORMONE REPLACEMENT THERAPY
     Dosage: UNK
     Dates: start: 19970101, end: 19980101
  3. ESTROGENS [Suspect]
     Indication: HORMONE REPLACEMENT THERAPY
  4. ACCUPRIL [Concomitant]
     Indication: HYPERTENSION
     Dosage: 20 MG, UNK
     Dates: start: 19830101
  5. VERELAN [Concomitant]
     Indication: HYPERTENSION
     Dosage: 360 MG, UNK
     Dates: start: 19830101
  6. THYROLAR [Concomitant]
     Indication: HYPOTHYROIDISM
     Dosage: UNK
     Dates: start: 19830101

REACTIONS (1)
  - BREAST CANCER FEMALE [None]
